FAERS Safety Report 8074111-6 (Version None)
Quarter: 2012Q1

REPORT INFORMATION
  Report Type: 
  Country: None (occurrence: None)
  Receive Date: 20120126
  Receipt Date: 20120116
  Transmission Date: 20120608
  Serious: Yes (Hospitalization)
  Sender: FDA-Public Use
  Company Number: US-EISAI INC-E3810-05248-SPO-US

PATIENT
  Sex: Male

DRUGS (2)
  1. ACIPHEX [Suspect]
     Route: 048
     Dates: start: 20120101
  2. WARFARIN SODIUM [Concomitant]
     Route: 048

REACTIONS (1)
  - EPISTAXIS [None]
